FAERS Safety Report 8756359 (Version 1)
Quarter: 2012Q4

REPORT INFORMATION
  Report Type: 
  Country: JP (occurrence: JP)
  Receive Date: 20120828
  Receipt Date: 20120828
  Transmission Date: 20130627
  Serious: No
  Sender: FDA-Public Use
  Company Number: JP-JNJFOC-20120808628

PATIENT

DRUGS (2)
  1. DUROTEP MT [Suspect]
     Indication: CANCER PAIN
     Route: 062
     Dates: start: 20120813
  2. OXINORM (OXYCODONE HYDROCHLORIDE) [Concomitant]
     Route: 048

REACTIONS (2)
  - Drug prescribing error [Unknown]
  - Drug prescribing error [Unknown]
